FAERS Safety Report 12878473 (Version 1)
Quarter: 2016Q4

REPORT INFORMATION
  Report Type: Spontaneous
  Country: US (occurrence: US)
  Receive Date: 20161024
  Receipt Date: 20161024
  Transmission Date: 20170207
  Serious: No
  Sender: FDA-Public Use
  Company Number: US-BAYER-2016-143753

PATIENT
  Age: 82 Year
  Sex: Male
  Weight: 97.51 kg

DRUGS (2)
  1. ALEVE [Concomitant]
     Active Substance: NAPROXEN SODIUM
  2. MIRALAX [Suspect]
     Active Substance: POLYETHYLENE GLYCOL 3350
     Dosage: UNK

REACTIONS (3)
  - Off label use of device [None]
  - Incorrect dose administered by device [None]
  - Off label use of device [None]

NARRATIVE: CASE EVENT DATE: 20160720
